FAERS Safety Report 9444672 (Version 1)
Quarter: 2013Q3

REPORT INFORMATION
  Report Type: Spontaneous
  Country: US (occurrence: US)
  Receive Date: 20130807
  Receipt Date: 20130807
  Transmission Date: 20140515
  Serious: Yes (Death)
  Sender: FDA-Public Use
  Company Number: US-UCBSA-080061

PATIENT
  Age: 82 Year
  Sex: Male

DRUGS (3)
  1. NEUPRO [Suspect]
     Indication: PARKINSON^S DISEASE
     Dosage: STRENGTH: 2 MG
  2. AZILECT [Concomitant]
  3. SINEMET [Concomitant]

REACTIONS (5)
  - Death [Fatal]
  - Metastases to liver [Unknown]
  - Movement disorder [Unknown]
  - Muscle rigidity [Unknown]
  - Abasia [Unknown]
